FAERS Safety Report 23829348 (Version 2)
Quarter: 2025Q2

REPORT INFORMATION
  Report Type: Spontaneous
  Country: US (occurrence: US)
  Receive Date: 20240508
  Receipt Date: 20250515
  Transmission Date: 20250716
  Serious: Yes (Other)
  Sender: UCB
  Company Number: US-UCBSA-2024007772

PATIENT
  Sex: Female

DRUGS (1)
  1. CIMZIA [Suspect]
     Active Substance: CERTOLIZUMAB PEGOL
     Indication: Rheumatoid arthritis
     Dosage: 400 MILLIGRAM, EV 4 WEEKS
     Route: 058

REACTIONS (14)
  - Neuropathy peripheral [Unknown]
  - Injection site bruising [Unknown]
  - Injection site discomfort [Unknown]
  - Chest pain [Unknown]
  - Gastrooesophageal reflux disease [Unknown]
  - Limb discomfort [Unknown]
  - Pain [Unknown]
  - Neck pain [Unknown]
  - Fall [Unknown]
  - Pain in extremity [Unknown]
  - Orthosis user [Unknown]
  - Gait disturbance [Unknown]
  - Dermatitis contact [Unknown]
  - Fatigue [Unknown]
